FAERS Safety Report 7319166-9 (Version None)
Quarter: 2011Q1

REPORT INFORMATION
  Report Type: 
  Country: None (occurrence: None)
  Receive Date: 20110228
  Receipt Date: 20110217
  Transmission Date: 20110831
  Serious: Yes (Other)
  Sender: FDA-Public Use
  Company Number: PHHY2011US13337

PATIENT
  Sex: Female

DRUGS (4)
  1. OXICODINE [Concomitant]
  2. CALCIUM [Concomitant]
  3. RECLAST [Suspect]
  4. VITAMIN D [Concomitant]

REACTIONS (2)
  - DRUG INEFFECTIVE [None]
  - FOOT FRACTURE [None]
